FAERS Safety Report 8295358-X (Version None)
Quarter: 2012Q2

REPORT INFORMATION
  Report Type: 
  Country: None (occurrence: None)
  Receive Date: 20120418
  Receipt Date: 20111110
  Transmission Date: 20120825
  Serious: No
  Sender: FDA-Public Use
  Company Number: GB-UCBSA-044124

PATIENT
  Sex: Female

DRUGS (2)
  1. KEPPRA [Suspect]
     Indication: EPILEPSY
  2. LAMOTRGINE [Suspect]
     Indication: EPILEPSY

REACTIONS (1)
  - PREGNANCY [None]
